FAERS Safety Report 18446016 (Version 3)
Quarter: 2021Q2

REPORT INFORMATION
  Report Type: Spontaneous
  Country: JP (occurrence: JP)
  Receive Date: 20201030
  Receipt Date: 20210406
  Transmission Date: 20210717
  Serious: Yes (Other)
  Sender: FDA-Public Use
  Company Number: JP-UCBSA-2020043658

PATIENT
  Age: 0 Year
  Weight: 2.15 kg

DRUGS (8)
  1. PREDNISOLONE. [Concomitant]
     Active Substance: PREDNISOLONE
     Dosage: 10 MILLIGRAM PER DAY
     Route: 064
  2. CYCLOSPORIN [Concomitant]
     Active Substance: CYCLOSPORINE
     Indication: IMPETIGO HERPETIFORMIS
     Dosage: 200 MILLIGRAM PER DAY
     Route: 064
  3. NEORAL [Concomitant]
     Active Substance: CYCLOSPORINE
     Dosage: 150 MG EVERY DAY
     Route: 064
  4. CYCLOSPORIN [Concomitant]
     Active Substance: CYCLOSPORINE
     Dosage: 150 MILLIGRAM PER DAY
  5. NEORAL [Concomitant]
     Active Substance: CYCLOSPORINE
     Indication: IMPETIGO HERPETIFORMIS
     Dosage: 100 MG EVERY 12 HR
     Route: 064
     Dates: start: 20200125, end: 20200213
  6. CERTOLIZUMAB PEGOL [Suspect]
     Active Substance: CERTOLIZUMAB PEGOL
     Indication: IMPETIGO HERPETIFORMIS
     Dosage: 400 MILLIGRAM, EV 2 WEEKS(QOW)
     Route: 064
     Dates: start: 20200129, end: 20200310
  7. PREDNISOLONE. [Concomitant]
     Active Substance: PREDNISOLONE
     Indication: IMPETIGO HERPETIFORMIS
     Dosage: 20 MILLIGRAM EVERY 12 HR
     Route: 064
     Dates: start: 20200127, end: 20200207
  8. VITAMIN D3 [Concomitant]
     Active Substance: CHOLECALCIFEROL
     Indication: PUSTULAR PSORIASIS
     Dosage: UNK
     Route: 064

REACTIONS (2)
  - Low birth weight baby [Unknown]
  - Maternal exposure during pregnancy [Unknown]

NARRATIVE: CASE EVENT DATE: 20200129
